FAERS Safety Report 6119176-3 (Version None)
Quarter: 2009Q1

REPORT INFORMATION
  Report Type: 
  Country: None (occurrence: None)
  Receive Date: 20090316
  Receipt Date: 20090303
  Transmission Date: 20090719
  Serious: Yes (Other)
  Sender: FDA-Public Use
  Company Number: US-ROCHE-595243

PATIENT
  Sex: Female

DRUGS (4)
  1. PEG-INTERFERON A-2A (RO 25-8310) [Suspect]
     Indication: HEPATITIS C
     Dosage: FORM: PRE FILLED SYRINGE
     Route: 065
     Dates: start: 20080307, end: 20090127
  2. RIBAVIRIN [Suspect]
     Indication: HEPATITIS C
     Route: 065
     Dates: start: 20080307, end: 20090127
  3. LEXAPRO [Concomitant]
     Indication: ANXIETY
  4. KLONOPIN [Concomitant]
     Indication: ANXIETY

REACTIONS (3)
  - DIARRHOEA [None]
  - FALL [None]
  - TREMOR [None]
